FAERS Safety Report 14759426 (Version 3)
Quarter: 2018Q4

REPORT INFORMATION
  Report Type: Spontaneous
  Country: US (occurrence: US)
  Receive Date: 20180413
  Receipt Date: 20181127
  Transmission Date: 20190204
  Serious: Yes (Other)
  Sender: FDA-Public Use
  Company Number: US-ASTRAZENECA-2018SE44330

PATIENT
  Age: 53 Year
  Sex: Male
  Weight: 108.9 kg

DRUGS (36)
  1. PRILOSEC [Suspect]
     Active Substance: OMEPRAZOLE MAGNESIUM
     Indication: GASTROOESOPHAGEAL REFLUX DISEASE
     Route: 048
     Dates: start: 2000, end: 2001
  2. PRILOSEC [Suspect]
     Active Substance: OMEPRAZOLE MAGNESIUM
     Indication: GASTROOESOPHAGEAL REFLUX DISEASE
     Dosage: GENERIC 20MG DAILY
     Route: 065
     Dates: start: 2007
  3. PRILOSEC [Suspect]
     Active Substance: OMEPRAZOLE MAGNESIUM
     Indication: GASTROOESOPHAGEAL REFLUX DISEASE
     Route: 048
     Dates: start: 20100910
  4. PREVACID [Suspect]
     Active Substance: LANSOPRAZOLE
     Indication: GASTROOESOPHAGEAL REFLUX DISEASE
     Route: 048
     Dates: start: 2000
  5. INSULIN [Concomitant]
     Active Substance: INSULIN NOS
     Dosage: U-100 1 ML 30 GAUGE X 5116
  6. LEVOTHYROXINE. [Concomitant]
     Active Substance: LEVOTHYROXINE
     Route: 048
  7. CLONIDINE HYDROCHLORIDE. [Concomitant]
     Active Substance: CLONIDINE HYDROCHLORIDE
     Route: 048
  8. METOPROLOL SUCCINATE. [Concomitant]
     Active Substance: METOPROLOL SUCCINATE
     Route: 048
  9. LOSARTAN. [Concomitant]
     Active Substance: LOSARTAN
  10. NEXIUM [Suspect]
     Active Substance: ESOMEPRAZOLE MAGNESIUM
     Indication: GASTROOESOPHAGEAL REFLUX DISEASE
     Route: 048
     Dates: start: 2000
  11. OMEGA-3 MARINE TRIGLYCERIDES [Concomitant]
     Active Substance: FISH OIL
     Indication: BLOOD CHOLESTEROL INCREASED
     Dates: start: 2008
  12. HUMALOG [Concomitant]
     Active Substance: INSULIN LISPRO
     Route: 048
  13. KLOR-CON [Concomitant]
     Active Substance: POTASSIUM CHLORIDE
     Route: 048
  14. NEURONTIN [Concomitant]
     Active Substance: GABAPENTIN
     Route: 048
  15. NIFEDIPINE. [Concomitant]
     Active Substance: NIFEDIPINE
     Route: 048
  16. VITAMIN D2 [Concomitant]
     Active Substance: ERGOCALCIFEROL
     Route: 048
  17. HYDRALAZINE [Concomitant]
     Active Substance: HYDRALAZINE HYDROCHLORIDE
     Route: 048
  18. HYDROCODONE BITARTRATE AND ACETAMINOPHEN [Concomitant]
     Active Substance: ACETAMINOPHEN\HYDROCODONE BITARTRATE
     Route: 048
  19. LASIX [Concomitant]
     Active Substance: FUROSEMIDE
     Route: 048
  20. PRILOSEC [Suspect]
     Active Substance: OMEPRAZOLE MAGNESIUM
     Indication: GASTROOESOPHAGEAL REFLUX DISEASE
     Dosage: GENERIC 20MG DAILY
     Route: 065
     Dates: start: 2003
  21. BABY ASPIRIN [Concomitant]
     Active Substance: ASPIRIN
     Indication: ANTICOAGULANT THERAPY
     Route: 048
  22. CORRECTOL NOS [Concomitant]
     Active Substance: BISACODYL OR DOCUSATE SODIUM
     Route: 048
  23. VALSARTAN. [Concomitant]
     Active Substance: VALSARTAN
     Route: 058
  24. ZOLPIDEM [Concomitant]
     Active Substance: ZOLPIDEM\ZOLPIDEM TARTRATE
     Route: 048
  25. FLOMAX [Concomitant]
     Active Substance: TAMSULOSIN HYDROCHLORIDE
     Route: 048
  26. LIPITOR [Concomitant]
     Active Substance: ATORVASTATIN CALCIUM
     Route: 048
  27. LISINOPRIL. [Concomitant]
     Active Substance: LISINOPRIL
  28. NEXIUM [Suspect]
     Active Substance: ESOMEPRAZOLE MAGNESIUM
     Indication: GASTROOESOPHAGEAL REFLUX DISEASE
     Route: 048
     Dates: start: 20060224
  29. EFFIENT [Concomitant]
     Active Substance: PRASUGREL HYDROCHLORIDE
     Route: 048
  30. NITROGLYCERIN. [Concomitant]
     Active Substance: NITROGLYCERIN
     Dosage: 0.2 MGFHR TRANSDERMAL 24 HOUR PATCH
     Route: 062
  31. ONDASETRON HCL [Concomitant]
     Active Substance: ONDANSETRON HYDROCHLORIDE
     Dosage: ONE TABLET UNDER THE TONGUE EVERY 5 MINUTES AS NEEDED
     Route: 060
  32. HYDROCHLOROTHIAZIDE. [Concomitant]
     Active Substance: HYDROCHLOROTHIAZIDE
  33. PREVACID [Suspect]
     Active Substance: LANSOPRAZOLE
     Indication: GASTROOESOPHAGEAL REFLUX DISEASE
     Route: 048
     Dates: start: 2004
  34. TOUJEO [Concomitant]
     Active Substance: INSULIN GLARGINE
     Dosage: INJECT 35 L.MIT(S) EVERY DAY BY SUBCUTANEOUS ROUTE AT BEDTIME.
     Route: 058
  35. AMBIEN [Concomitant]
     Active Substance: ZOLPIDEM TARTRATE
     Route: 048
  36. METOPROLOL. [Concomitant]
     Active Substance: METOPROLOL
     Route: 048

REACTIONS (5)
  - Chronic kidney disease [Not Recovered/Not Resolved]
  - Acute kidney injury [Not Recovered/Not Resolved]
  - Renal failure [Unknown]
  - End stage renal disease [Not Recovered/Not Resolved]
  - Hyperparathyroidism secondary [Unknown]

NARRATIVE: CASE EVENT DATE: 2015
